FAERS Safety Report 20379085 (Version 2)
Quarter: 2022Q1

REPORT INFORMATION
  Report Type: Report from Study
  Country: CA (occurrence: CA)
  Receive Date: 20220126
  Receipt Date: 20220323
  Transmission Date: 20220424
  Serious: Yes (Hospitalization, Other)
  Sender: FDA-Public Use
  Company Number: CA-JNJFOC-20211263271

PATIENT
  Age: 70 Year
  Sex: Female

DRUGS (1)
  1. REMICADE [Suspect]
     Active Substance: INFLIXIMAB
     Indication: Crohn^s disease
     Dosage: INFUSED LAST DOSE IN 22-NOV-2021.
     Route: 042
     Dates: start: 20151103

REACTIONS (3)
  - Sepsis [Unknown]
  - Dialysis [Unknown]
  - Infection [Unknown]

NARRATIVE: CASE EVENT DATE: 20211229
